FAERS Safety Report 7386259-X (Version None)
Quarter: 2011Q1

REPORT INFORMATION
  Report Type: 
  Country: None (occurrence: None)
  Receive Date: 20110331
  Receipt Date: 20110324
  Transmission Date: 20110831
  Serious: Yes (Life-Threatening, Hospitalization)
  Sender: FDA-Public Use
  Company Number: FR-NOVOPROD-325589

PATIENT
  Age: 83 Year
  Sex: Female

DRUGS (6)
  1. REPAGLINIDE [Suspect]
     Indication: PRODUCT USED FOR UNKNOWN INDICATION
     Dosage: 1 MG
     Route: 065
     Dates: end: 20110102
  2. METFORMINE [Concomitant]
     Dosage: 500 MG, TID
     Route: 065
  3. COVERSYL                           /00790702/ [Concomitant]
     Dosage: 5 L/DAYS
  4. AMLODIPINE BESYLATE [Concomitant]
     Dosage: 5 MG, QD, IN THE EVENING
  5. CRESTOR [Concomitant]
     Dosage: CRESTOR10, 1 IN THE EVENING
  6. ALDACTAZINE [Concomitant]
     Dosage: 1 IN THE MORNING

REACTIONS (1)
  - CEREBRAL ISCHAEMIA [None]
